FAERS Safety Report 6440076-3 (Version None)
Quarter: 2009Q4

REPORT INFORMATION
  Report Type: 
  Country: None (occurrence: None)
  Receive Date: 20091113
  Receipt Date: 20091104
  Transmission Date: 20100525
  Serious: Yes (Other)
  Sender: FDA-Public Use
  Company Number: ZA-ASTRAZENECA-2009SE24654

PATIENT
  Age: 24338 Day
  Sex: Male
  Weight: 75 kg

DRUGS (4)
  1. CRESTOR [Suspect]
     Indication: HYPERLIPIDAEMIA
     Route: 048
     Dates: start: 20070101, end: 20090709
  2. CRESTOR [Suspect]
     Route: 048
     Dates: start: 20090710, end: 20091104
  3. SOTALOL HCL [Concomitant]
     Indication: HYPERTENSION
     Route: 048
     Dates: start: 19900101
  4. PREXUM [Concomitant]
     Indication: HYPERTENSION
     Route: 048
     Dates: start: 20040101

REACTIONS (3)
  - BLOOD CHOLESTEROL INCREASED [None]
  - DRUG INEFFECTIVE [None]
  - LOW DENSITY LIPOPROTEIN INCREASED [None]
